FAERS Safety Report 20641731 (Version 6)
Quarter: 2022Q3

REPORT INFORMATION
  Report Type: Other
  Country: US (occurrence: None)
  Receive Date: 20220328
  Receipt Date: 20220902
  Transmission Date: 20221027
  Serious: No
  Sender: FDA-Public Use
  Company Number: US-ROCHE-3054140

PATIENT
  Age: 71 Year
  Sex: Female

DRUGS (36)
  1. OCRELIZUMAB [Suspect]
     Active Substance: OCRELIZUMAB
     Indication: Multiple sclerosis
     Dosage: FIRST ADMINISTRATION.
     Route: 042
     Dates: start: 20211102
  2. OCRELIZUMAB [Suspect]
     Active Substance: OCRELIZUMAB
     Dosage: SECOND ADMINISTRATION. FOLLOWED BY 600 MG 6 MONTHLY.
     Route: 065
     Dates: start: 20211116
  3. OCRELIZUMAB [Suspect]
     Active Substance: OCRELIZUMAB
     Route: 065
     Dates: start: 20220503
  4. COENZYME Q10 [Concomitant]
     Active Substance: DIETARY SUPPLEMENT\UBIDECARENONE
     Indication: Prophylaxis
     Dates: start: 2015
  5. PFIZER-BIONTECH COVID-19 VACCINE [Concomitant]
     Active Substance: TOZINAMERAN
     Indication: Immunisation
     Dosage: NEXT DOSE ON: 25/MAY/2021, BOOSTER ON: 17/SEP/2021
     Dates: start: 20210504, end: 20210504
  6. ARMODAFINIL [Concomitant]
     Active Substance: ARMODAFINIL
     Indication: Fatigue
     Dates: start: 20210405, end: 20210903
  7. ARMODAFINIL [Concomitant]
     Active Substance: ARMODAFINIL
     Dates: start: 20211206, end: 20211231
  8. ASPIRIN [Concomitant]
     Active Substance: ASPIRIN
     Dates: start: 2011
  9. CELEXA [Concomitant]
     Active Substance: CITALOPRAM HYDROBROMIDE
     Dates: start: 2011
  10. TRAZODONE [Concomitant]
     Active Substance: TRAZODONE HYDROCHLORIDE
     Dates: start: 2011
  11. FOLIC ACID [Concomitant]
     Active Substance: FOLIC ACID
     Dates: start: 2015
  12. CALCIUM CARBONATE [Concomitant]
     Active Substance: CALCIUM CARBONATE
  13. PROLIA [Concomitant]
     Active Substance: DENOSUMAB
  14. GLUCOSAMINE/CHONDROITIN [CHONDROITIN SULFATE SODIUM;GLUCOSAMINE HYDROC [Concomitant]
  15. MAGNESIUM OXIDE [Concomitant]
     Active Substance: MAGNESIUM OXIDE
  16. OMEGA 3 [Concomitant]
     Active Substance: CAPSAICIN
     Indication: Prophylaxis
     Dates: start: 2015
  17. TRIAMCINOLONE [Concomitant]
     Active Substance: TRIAMCINOLONE
  18. MUCINEX [Concomitant]
     Active Substance: GUAIFENESIN
     Dates: start: 202112
  19. CLARITIN [Concomitant]
     Active Substance: LORATADINE
     Dates: start: 202112
  20. VITAMIN C [Concomitant]
     Active Substance: ASCORBIC ACID
  21. MUCINEX [Concomitant]
     Active Substance: GUAIFENESIN
     Dates: start: 202112
  22. LORATADINE [Concomitant]
     Active Substance: LORATADINE
     Dates: start: 202112
  23. VITAMIN C [Concomitant]
     Active Substance: ASCORBIC ACID
     Indication: Prophylaxis
     Dates: start: 2015
  24. TRIAMCINOLONE [Concomitant]
     Active Substance: TRIAMCINOLONE
     Dates: start: 20190514
  25. OMEGA-3 FATTY ACIDS [Concomitant]
     Active Substance: OMEGA-3 FATTY ACIDS
     Indication: Prophylaxis
     Dates: start: 2015
  26. MAGNESIUM OXIDE [Concomitant]
     Active Substance: MAGNESIUM OXIDE
     Indication: Prophylaxis
     Dates: start: 2015
  27. GLUCOSAMINE CHONDROITIN COMPLEX ADVANV (UNK INGREDIENTS) [Concomitant]
     Indication: Prophylaxis
     Dates: start: 2015
  28. DENOSUMAB [Concomitant]
     Active Substance: DENOSUMAB
     Dates: start: 2020
  29. COENZYME Q10 [Concomitant]
     Active Substance: DIETARY SUPPLEMENT\UBIDECARENONE
     Indication: Prophylaxis
     Dates: start: 2015
  30. CALCIUM CARBONATE [Concomitant]
     Active Substance: CALCIUM CARBONATE
     Indication: Prophylaxis
     Dates: start: 2015
  31. B COMPLEX WITH FOLIC ACID [Concomitant]
     Indication: Prophylaxis
     Dates: start: 2015
  32. TRAZODONE [Concomitant]
     Active Substance: TRAZODONE HYDROCHLORIDE
     Dates: start: 2011
  33. PRAVASTATIN [Concomitant]
     Active Substance: PRAVASTATIN
  34. PRILOSEC [Concomitant]
     Active Substance: OMEPRAZOLE MAGNESIUM
     Dates: start: 2011
  35. CELEXA [Concomitant]
     Active Substance: CITALOPRAM HYDROBROMIDE
     Dates: start: 2011
  36. ASPIRIN [Concomitant]
     Active Substance: ASPIRIN
     Dates: start: 2011

REACTIONS (1)
  - COVID-19 [Recovered/Resolved]

NARRATIVE: CASE EVENT DATE: 20220218
